FAERS Safety Report 11643578 (Version 4)
Quarter: 2016Q2

REPORT INFORMATION
  Report Type: Spontaneous
  Country: US (occurrence: US)
  Receive Date: 20151020
  Receipt Date: 20160412
  Transmission Date: 20160815
  Serious: No
  Sender: FDA-Public Use
  Company Number: US-TAKEDA-2015MPI006861

PATIENT
  Sex: Male
  Weight: 72 kg

DRUGS (1)
  1. VELCADE [Suspect]
     Active Substance: BORTEZOMIB
     Indication: PLASMA CELL MYELOMA
     Dosage: 1.9 MG, 1/WEEK
     Route: 065
     Dates: start: 20150812, end: 20150826

REACTIONS (1)
  - Drug ineffective [Unknown]
